FAERS Safety Report 12157163 (Version 1)
Quarter: 2016Q1

REPORT INFORMATION
  Report Type: Spontaneous
  Country: IT (occurrence: IT)
  Receive Date: 20160308
  Receipt Date: 20160308
  Transmission Date: 20160526
  Serious: Yes (Death, Hospitalization, Other)
  Sender: FDA-Public Use
  Company Number: IT-ALVOGEN-2016-ALVOGEN-022469

PATIENT
  Age: 77 Year
  Sex: Female

DRUGS (1)
  1. DOXORUBICIN [Suspect]
     Active Substance: DOXORUBICIN
     Indication: ANGIOSARCOMA
     Dosage: ON DAY 1 EVERY 28 DAYS
     Route: 042

REACTIONS (4)
  - Diarrhoea [Unknown]
  - Pulmonary fibrosis [Fatal]
  - Enterococcal bacteraemia [Recovered/Resolved]
  - Asthenia [Unknown]
